FAERS Safety Report 6629375-X (Version None)
Quarter: 2010Q1

REPORT INFORMATION
  Report Type: 
  Country: None (occurrence: None)
  Receive Date: 20100311
  Receipt Date: 20090714
  Transmission Date: 20100710
  Serious: No
  Sender: FDA-Public Use
  Company Number: US-BIOGENIDEC-2009BI021653

PATIENT
  Age: 49 Year
  Sex: Female

DRUGS (3)
  1. AVONEX [Suspect]
     Indication: MULTIPLE SCLEROSIS
     Route: 030
     Dates: start: 20080701, end: 20080715
  2. AVONEX [Suspect]
     Route: 030
     Dates: start: 20080722, end: 20080812
  3. AVONEX [Suspect]
     Route: 030
     Dates: start: 20080819

REACTIONS (6)
  - FEELING COLD [None]
  - HYPOAESTHESIA EYE [None]
  - HYPOAESTHESIA FACIAL [None]
  - HYPOAESTHESIA ORAL [None]
  - INFLUENZA LIKE ILLNESS [None]
  - TREMOR [None]
